FAERS Safety Report 18929540 (Version 1)
Quarter: 2021Q1

REPORT INFORMATION
  Report Type: Spontaneous
  Country: US (occurrence: US)
  Receive Date: 20210223
  Receipt Date: 20210223
  Transmission Date: 20210420
  Serious: No
  Sender: FDA-Public Use
  Company Number: US-ROCHE-2662569

PATIENT

DRUGS (2)
  1. ZYRTEC (UNITED STATES) [Concomitant]
     Indication: SEASONAL ALLERGY
  2. NUTROPIN [Suspect]
     Active Substance: SOMATROPIN
     Indication: GROWTH HORMONE DEFICIENCY
     Route: 065
     Dates: start: 20200714, end: 20200816

REACTIONS (2)
  - Incorrect dose administered [Unknown]
  - No adverse event [Unknown]
